FAERS Safety Report 20074050 (Version 1)
Quarter: 2021Q4

REPORT INFORMATION
  Report Type: Spontaneous
  Country: CN (occurrence: CN)
  Receive Date: 20211116
  Receipt Date: 20211116
  Transmission Date: 20220303
  Serious: Yes (Other)
  Sender: FDA-Public Use
  Company Number: CN-BoehringerIngelheim-2021-BI-136696

PATIENT
  Age: 79 Year
  Sex: Female
  Weight: 80 kg

DRUGS (1)
  1. ALTEPLASE [Suspect]
     Active Substance: ALTEPLASE
     Indication: Cerebral infarction
     Route: 042
     Dates: start: 20211015, end: 20211015

REACTIONS (2)
  - Cerebral haemorrhage [Recovering/Resolving]
  - Muscle contractions involuntary [Recovering/Resolving]

NARRATIVE: CASE EVENT DATE: 20211016
